FAERS Safety Report 9548152 (Version 1)
Quarter: 2013Q3

REPORT INFORMATION
  Report Type: Spontaneous
  Country: US (occurrence: None)
  Receive Date: 20130710
  Receipt Date: 20130710
  Transmission Date: 20140515
  Serious: Yes (Other)
  Sender: FDA-Public Use
  Company Number: US-OR-12P1022921

PATIENT
  Sex: Female

DRUGS (1)
  1. SOLODYN [Suspect]

REACTIONS (1)
  - Serum sickness [None]
